FAERS Safety Report 8612164-4 (Version None)
Quarter: 2012Q3

REPORT INFORMATION
  Report Type: 
  Country: None (occurrence: None)
  Receive Date: 20120822
  Receipt Date: 20120813
  Transmission Date: 20120928
  Serious: Yes (Hospitalization)
  Sender: FDA-Public Use
  Company Number: AU-PFIZER INC-2012180845

PATIENT
  Age: 66 Year
  Sex: Male
  Weight: 78.2 kg

DRUGS (5)
  1. FEXOFENADINE HYDROCHLORIDE [Concomitant]
     Indication: URTICARIA
     Dosage: 180MG PER DAY
     Route: 048
     Dates: start: 20120613
  2. FELDENE [Suspect]
     Indication: PAIN
     Dosage: 20 MG, 1X/DAY
     Route: 048
     Dates: start: 20120514
  3. PF-03512676 [Suspect]
     Indication: NON-SMALL CELL LUNG CANCER
     Dosage: 5 UG, 1X/DAY
     Route: 030
     Dates: start: 20120605, end: 20120605
  4. MAGE3-AS15-ASCI [Suspect]
     Indication: NON-SMALL CELL LUNG CANCER
     Dosage: 300 UG, 1X/DAY
     Route: 030
     Dates: start: 20120605, end: 20120605
  5. LORATADINE [Concomitant]
     Indication: URTICARIA
     Dosage: 20MG PER DAY
     Route: 048
     Dates: start: 20120613

REACTIONS (1)
  - GASTROOESOPHAGEAL REFLUX DISEASE [None]
